FAERS Safety Report 23414766 (Version 2)
Quarter: 2024Q1

REPORT INFORMATION
  Report Type: Other
  Country: DE (occurrence: DE)
  Receive Date: 20240118
  Receipt Date: 20240130
  Transmission Date: 20240409
  Serious: Yes (Death, Hospitalization)
  Sender: FDA-Public Use
  Company Number: DE-ALVOGEN-2024092871

PATIENT
  Age: 35 Year
  Sex: Male

DRUGS (1)
  1. DAPSONE [Suspect]
     Active Substance: DAPSONE
     Indication: Leprosy
     Dosage: 6 WEEKS TREATMENT

REACTIONS (12)
  - Drug reaction with eosinophilia and systemic symptoms [Fatal]
  - Dermatitis exfoliative [Fatal]
  - Pyrexia [Fatal]
  - Anaemia [Fatal]
  - Hepatitis [Fatal]
  - Splenomegaly [Fatal]
  - Renal injury [Fatal]
  - Liver disorder [Fatal]
  - Portal hypertension [Fatal]
  - Hepatorenal syndrome [Fatal]
  - Haematemesis [Fatal]
  - Respiratory arrest [Fatal]
